FAERS Safety Report 7680950-3 (Version None)
Quarter: 2011Q3

REPORT INFORMATION
  Report Type: 
  Country: None (occurrence: None)
  Receive Date: 20110809
  Receipt Date: 20110526
  Transmission Date: 20111222
  Serious: No
  Sender: FDA-Public Use
  Company Number: 2011-011

PATIENT
  Sex: Male

DRUGS (1)
  1. LACTULOSE [Suspect]

REACTIONS (3)
  - DYSGEUSIA [None]
  - ABDOMINAL PAIN [None]
  - PRODUCT SUBSTITUTION ISSUE [None]
